FAERS Safety Report 15898452 (Version 2)
Quarter: 2019Q1

REPORT INFORMATION
  Report Type: Report from Study
  Country: US (occurrence: US)
  Receive Date: 20190201
  Receipt Date: 20190306
  Transmission Date: 20190417
  Serious: Yes (Hospitalization, Disabling, Other)
  Sender: FDA-Public Use
  Company Number: US-EMD SERONO-7202758

PATIENT
  Sex: Female
  Weight: 59 kg

DRUGS (1)
  1. REBIF [Suspect]
     Active Substance: INTERFERON BETA-1A
     Indication: MULTIPLE SCLEROSIS
     Route: 058
     Dates: start: 20130125

REACTIONS (8)
  - Blood test abnormal [Unknown]
  - Fatigue [Not Recovered/Not Resolved]
  - Blood calcium increased [Unknown]
  - Hip arthroplasty [Unknown]
  - Gait inability [Not Recovered/Not Resolved]
  - Hypertension [Recovering/Resolving]
  - Goitre [Recovering/Resolving]
  - Cholelithiasis [Unknown]

NARRATIVE: CASE EVENT DATE: 2013
